FAERS Safety Report 12457851 (Version 2)
Quarter: 2016Q2

REPORT INFORMATION
  Report Type: Spontaneous
  Country: CN (occurrence: CN)
  Receive Date: 20160611
  Receipt Date: 20160621
  Transmission Date: 20160815
  Serious: Yes (Other)
  Sender: FDA-Public Use
  Company Number: CN-009507513-1412CHN012844

PATIENT
  Age: 55 Year
  Sex: Male
  Weight: 68 kg

DRUGS (11)
  1. METOCLOPRAMIDE. [Concomitant]
     Active Substance: METOCLOPRAMIDE
     Indication: PROPHYLAXIS OF NAUSEA AND VOMITING
     Dosage: TOTAL DAILY DOSE 2 ML/CC, QD
     Route: 030
     Dates: start: 20141215, end: 20141218
  2. EMEND [Suspect]
     Active Substance: APREPITANT
     Dosage: 80 MG  (DAY 2), ONCE
     Route: 048
     Dates: start: 20141216, end: 20141217
  3. DEXAMETHASONE SODIUM PHOSPHATE. [Concomitant]
     Active Substance: DEXAMETHASONE SODIUM PHOSPHATE
     Indication: PROPHYLAXIS OF NAUSEA AND VOMITING
     Dosage: 5 MG, QD
     Route: 041
     Dates: start: 20141215, end: 20141217
  4. MICARDIS [Concomitant]
     Active Substance: TELMISARTAN
     Indication: HYPERTENSION
     Dosage: UNK, QD
     Route: 048
     Dates: start: 201403
  5. ONDANSETRON HYDROCHLORIDE. [Concomitant]
     Active Substance: ONDANSETRON HYDROCHLORIDE
     Indication: PROPHYLAXIS OF NAUSEA AND VOMITING
     Dosage: TOTAL DAILY DOSE 8 MG, BID
     Route: 042
     Dates: start: 20141215, end: 20141218
  6. ETOPOSIDE. [Concomitant]
     Active Substance: ETOPOSIDE
     Indication: CHEMOTHERAPY
     Dosage: 175 MG, UNK, TREATMENT CYCLE 1/UNK
     Route: 041
     Dates: start: 20141215, end: 20141217
  7. CISPLATIN. [Concomitant]
     Active Substance: CISPLATIN
     Indication: CHEMOTHERAPY
     Dosage: 40 MG, UNK, TREATMENT CYCLE 1/UNK
     Route: 041
     Dates: start: 20141215, end: 20141216
  8. CISPLATIN. [Concomitant]
     Active Substance: CISPLATIN
     Dosage: 50 MG, UNK, TREATMENT CYCLE 1/UNK
     Route: 041
     Dates: start: 20141217, end: 20141217
  9. LACTULOSE. [Concomitant]
     Active Substance: LACTULOSE
     Indication: CONSTIPATION PROPHYLAXIS
     Dosage: TOTAL DAILY DOSE 20 G, BID
     Route: 048
     Dates: start: 20141216, end: 20141218
  10. EMEND [Suspect]
     Active Substance: APREPITANT
     Indication: PROPHYLAXIS OF NAUSEA AND VOMITING
     Dosage: 125 MG (DAY 1), ONCE
     Route: 048
     Dates: start: 20141215, end: 20141215
  11. OMEPRAZOLE. [Concomitant]
     Active Substance: OMEPRAZOLE
     Indication: PROPHYLAXIS
     Dosage: 40 MG, QD
     Route: 041
     Dates: start: 20141215, end: 20141218

REACTIONS (2)
  - Decreased appetite [Recovered/Resolved]
  - Atrial fibrillation [Recovered/Resolved]

NARRATIVE: CASE EVENT DATE: 20141217
